FAERS Safety Report 17564159 (Version 2)
Quarter: 2020Q2

REPORT INFORMATION
  Report Type: Report from Study
  Country: US (occurrence: US)
  Receive Date: 20200320
  Receipt Date: 20200430
  Transmission Date: 20200713
  Serious: Yes (Death, Other)
  Sender: FDA-Public Use
  Company Number: US-ACADIA PHARMACEUTICALS INC.-ACA-2020-PIM-000869

PATIENT
  Age: 78 Year
  Sex: Male

DRUGS (32)
  1. CARBIDOPA/LEVODOPA [Concomitant]
     Active Substance: CARBIDOPA\LEVODOPA
     Indication: MUSCULOSKELETAL STIFFNESS
     Dosage: 25-100 MG, 1 TAB, 6:30 AM, (1 TAB PRN QD)
     Route: 048
     Dates: start: 20191119
  2. OMEPRAZOLE. [Concomitant]
     Active Substance: OMEPRAZOLE
     Indication: PRODUCT USED FOR UNKNOWN INDICATION
     Dosage: 20 MILLIGRAM, QD
     Route: 048
     Dates: start: 20191008
  3. QUETIAPINE. [Concomitant]
     Active Substance: QUETIAPINE
     Indication: FEELING ABNORMAL
     Dosage: 25 MILLIGRAM, PRN, DAILY
     Dates: start: 20191027
  4. PROBIOTIC [BIFIDOBACTERIUM LACTIS] [Concomitant]
     Active Substance: BIFIDOBACTERIUM ANIMALIS LACTIS
     Indication: PRODUCT USED FOR UNKNOWN INDICATION
     Dosage: UNK
     Route: 048
  5. NORTRIPTYLINE [Concomitant]
     Active Substance: NORTRIPTYLINE
     Dosage: 25 MG CAPSULE
     Dates: start: 20200207
  6. D-MANNOSE [Concomitant]
     Indication: PRODUCT USED FOR UNKNOWN INDICATION
     Route: 048
  7. FLUTICASONE PROPIONATE. [Concomitant]
     Active Substance: FLUTICASONE PROPIONATE
     Indication: PRODUCT USED FOR UNKNOWN INDICATION
     Dosage: 0.05%, PRN
     Route: 061
     Dates: start: 20190118
  8. NORTRIPTYLINE [Concomitant]
     Active Substance: NORTRIPTYLINE
     Indication: PRODUCT USED FOR UNKNOWN INDICATION
     Dosage: 10 MG CAPSULE, TAKE 2 CAPSULES EVERY DAY
     Route: 048
     Dates: start: 20191119
  9. QUETIAPINE. [Concomitant]
     Active Substance: QUETIAPINE
     Dosage: 50 MILLIGRAM, TAKE 1 TABLET QD ORAL AT BEDTIME
     Dates: start: 20191119
  10. CARBIDOPA;ENTACAPONE;LEVODOPA [Concomitant]
     Active Substance: CARBIDOPA\ENTACAPONE\LEVODOPA
     Dosage: 50 MG-200 MG, DISCONTINUED ON DAY 7
     Dates: start: 201911
  11. ASPIRIN (E.C.) [Concomitant]
     Active Substance: ASPIRIN
     Indication: PRODUCT USED FOR UNKNOWN INDICATION
     Dosage: 325 MILLIGRAM
     Route: 048
  12. MACROBID [CLARITHROMYCIN] [Concomitant]
     Active Substance: CLARITHROMYCIN
     Indication: PRODUCT USED FOR UNKNOWN INDICATION
     Dosage: UNK, QD
     Route: 048
  13. AZILECT [Concomitant]
     Active Substance: RASAGILINE MESYLATE
     Indication: HALLUCINATION, VISUAL
     Dosage: UNK
     Dates: start: 2016
  14. DULOXETINE. [Concomitant]
     Active Substance: DULOXETINE
     Indication: FATIGUE
     Dosage: 100 MG AT 7 AM
  15. ATORVASTATIN [Concomitant]
     Active Substance: ATORVASTATIN
     Indication: PRODUCT USED FOR UNKNOWN INDICATION
     Dosage: 40 MILLIGRAM, QD
     Route: 048
  16. VITAMIN B12 [Concomitant]
     Active Substance: CYANOCOBALAMIN
     Indication: PRODUCT USED FOR UNKNOWN INDICATION
     Route: 048
  17. GUAIFENESIN. [Concomitant]
     Active Substance: GUAIFENESIN
     Indication: PRODUCT USED FOR UNKNOWN INDICATION
     Dosage: 200 MILLIGRAM, BID
     Route: 048
     Dates: start: 20191119
  18. VITAMINS NOS [Concomitant]
     Active Substance: VITAMINS
     Indication: PRODUCT USED FOR UNKNOWN INDICATION
     Route: 048
  19. ROPINIROLE. [Concomitant]
     Active Substance: ROPINIROLE
     Indication: FATIGUE
     Dosage: 50 MG AT 2 PM
  20. DIVALPROEX [Concomitant]
     Active Substance: DIVALPROEX SODIUM
     Indication: PRODUCT USED FOR UNKNOWN INDICATION
     Dosage: 1 TABLET AT BEDTIME
     Dates: start: 20191023
  21. AMLODIPINE [Concomitant]
     Active Substance: AMLODIPINE BESYLATE
     Indication: PRODUCT USED FOR UNKNOWN INDICATION
     Dosage: 5 MILLIGRAM, QD
     Route: 048
     Dates: start: 20191113
  22. LATANOPROST. [Concomitant]
     Active Substance: LATANOPROST
     Indication: PRODUCT USED FOR UNKNOWN INDICATION
     Dosage: 0.005%
     Dates: start: 20191113
  23. NUPLAZID [Suspect]
     Active Substance: PIMAVANSERIN TARTRATE
     Indication: PARKINSON^S DISEASE
     Dosage: 34 MILLIGRAM, QD
     Route: 048
     Dates: start: 20181114, end: 20191213
  24. MIRALAX [Concomitant]
     Active Substance: POLYETHYLENE GLYCOL 3350
     Indication: PRODUCT USED FOR UNKNOWN INDICATION
     Dosage: 17 MILLIGRAM, QD
     Route: 048
     Dates: start: 20191119
  25. QUETIAPINE. [Concomitant]
     Active Substance: QUETIAPINE
     Indication: FATIGUE
     Dosage: 150 MG AT 9 PM
  26. STOOL SOFTENER (DOCUSATE) [Concomitant]
     Active Substance: DOCUSATE
     Indication: PRODUCT USED FOR UNKNOWN INDICATION
     Route: 048
  27. DULOXETINE. [Concomitant]
     Active Substance: DULOXETINE
     Indication: FEELING ABNORMAL
  28. ROPINIROLE. [Concomitant]
     Active Substance: ROPINIROLE
     Indication: FEELING ABNORMAL
  29. CARBIDOPA/LEVODOPA [Concomitant]
     Active Substance: CARBIDOPA\LEVODOPA
     Dosage: 50-200 MG, DAYS 1-3 (1 TAB), DAYS 4-6 (2 TAB), DAYS 7-ONWARD (3 TAB)
     Route: 048
     Dates: start: 201911
  30. OLANZAPINE. [Concomitant]
     Active Substance: OLANZAPINE
     Indication: PRODUCT USED FOR UNKNOWN INDICATION
     Dosage: 2.5 MG TABLET, TAKE 1 TABLET BID
     Route: 048
     Dates: start: 20191119
  31. CARBIDOPA;ENTACAPONE;LEVODOPA [Concomitant]
     Active Substance: CARBIDOPA\ENTACAPONE\LEVODOPA
     Indication: PRODUCT USED FOR UNKNOWN INDICATION
     Dosage: 37.5 MG-150 MG-200 MG
     Dates: start: 20191119
  32. ALLERFEX [Concomitant]
     Indication: PRODUCT USED FOR UNKNOWN INDICATION
     Route: 048

REACTIONS (1)
  - Death [Recovered/Resolved]

NARRATIVE: CASE EVENT DATE: 20200214
